FAERS Safety Report 25979090 (Version 1)
Quarter: 2025Q4

REPORT INFORMATION
  Report Type: Spontaneous
  Country: US (occurrence: None)
  Receive Date: 20251029
  Receipt Date: 20251029
  Transmission Date: 20260117
  Serious: Yes (Death)
  Sender: FDA-CTU
  Company Number: None

PATIENT
  Age: 76 Year
  Sex: Male

DRUGS (23)
  1. TADALAFIL [Suspect]
     Active Substance: TADALAFIL
     Indication: Pulmonary hypertension
     Dosage: 20MG QD ORAL ?
     Route: 048
     Dates: start: 20240307, end: 20250905
  2. OMEPRAZOLE [Concomitant]
     Active Substance: OMEPRAZOLE
  3. PROPRANOLOL [Concomitant]
     Active Substance: PROPRANOLOL HYDROCHLORIDE
  4. GABAPENTIN [Concomitant]
     Active Substance: GABAPENTIN
  5. ATORVASTATIN [Concomitant]
     Active Substance: ATORVASTATIN
  6. ALENDRONATE [Concomitant]
     Active Substance: ALENDRONATE SODIUM
  7. TRAZODONE [Concomitant]
     Active Substance: TRAZODONE HYDROCHLORIDE
  8. METFORMIN [Concomitant]
     Active Substance: METFORMIN HYDROCHLORIDE
  9. WIXELA INHUB [Concomitant]
     Active Substance: FLUTICASONE PROPIONATE\SALMETEROL XINAFOATE
  10. NALOXONE [Concomitant]
     Active Substance: NALOXONE
  11. TORSEMIDE [Concomitant]
     Active Substance: TORSEMIDE
  12. ALBUTEROL SULFATE [Concomitant]
     Active Substance: ALBUTEROL SULFATE
  13. SPIRIVA RESPIMAT [Concomitant]
     Active Substance: TIOTROPIUM BROMIDE
  14. oxygen intranasal [Concomitant]
  15. MELATONIN [Concomitant]
     Active Substance: MELATONIN
  16. VITAMIN B12 [Concomitant]
     Active Substance: CYANOCOBALAMIN
  17. GLUCOSAMINE [Concomitant]
     Active Substance: GLUCOSAMINE
  18. FISH OIL [Concomitant]
     Active Substance: FISH OIL
  19. ACETAMINOPHEN [Concomitant]
     Active Substance: ACETAMINOPHEN
  20. VITAMIN E [Concomitant]
     Active Substance: .ALPHA.-TOCOPHEROL
  21. CALCIUM CARBONATE [Concomitant]
     Active Substance: CALCIUM CARBONATE
  22. MAGNESIUM OXIDE [Concomitant]
     Active Substance: MAGNESIUM OXIDE
  23. VITAMIN D3 [Concomitant]
     Active Substance: CHOLECALCIFEROL

REACTIONS (2)
  - Treatment noncompliance [None]
  - Diabetes mellitus inadequate control [None]

NARRATIVE: CASE EVENT DATE: 20250905
